FAERS Safety Report 5764567-3 (Version None)
Quarter: 2008Q2

REPORT INFORMATION
  Report Type: 
  Country: None (occurrence: None)
  Receive Date: 20080610
  Receipt Date: 20080529
  Transmission Date: 20081010
  Serious: Yes (Death, Other)
  Sender: FDA-Public Use
  Company Number: FR-PFIZER INC-2008047979

PATIENT
  Sex: Female

DRUGS (3)
  1. NEURONTIN [Suspect]
  2. EPITOMAX [Suspect]
  3. FOLIC ACID [Concomitant]

REACTIONS (1)
  - INTRA-UTERINE DEATH [None]
